FAERS Safety Report 10661414 (Version 1)
Quarter: 2014Q4

REPORT INFORMATION
  Report Type: Spontaneous
  Country: US (occurrence: None)
  Receive Date: 20141217
  Receipt Date: 20141217
  Transmission Date: 20150529
  Serious: Yes (Other)
  Sender: FDA-Public Use
  Company Number: None

PATIENT
  Age: 57 Year
  Sex: Female
  Weight: 68.04 kg

DRUGS (11)
  1. PAMELOR [Concomitant]
     Active Substance: NORTRIPTYLINE HYDROCHLORIDE
  2. APAP [Concomitant]
     Active Substance: ACETAMINOPHEN
  3. METFORMIN [Concomitant]
     Active Substance: METFORMIN HYDROCHLORIDE
  4. ZYNTHROID [Concomitant]
  5. PLAVIX [Concomitant]
     Active Substance: CLOPIDOGREL BISULFATE
  6. STELARA [Concomitant]
     Active Substance: USTEKINUMAB
  7. VITAMIN C [Concomitant]
     Active Substance: ASCORBIC ACID
  8. HUMIRA [Suspect]
     Active Substance: ADALIMUMAB
     Indication: PSORIASIS
     Route: 058
     Dates: start: 20140418, end: 20141124
  9. ZETIA [Concomitant]
     Active Substance: EZETIMIBE
  10. DIOVANL LOVAZA [Concomitant]
  11. ZEGERID [Concomitant]
     Active Substance: OMEPRAZOLE\SODIUM BICARBONATE

REACTIONS (1)
  - Treatment failure [None]

NARRATIVE: CASE EVENT DATE: 20141215
